FAERS Safety Report 22216466 (Version 1)
Quarter: 2023Q2

REPORT INFORMATION
  Report Type: Spontaneous
  Country: US (occurrence: US)
  Receive Date: 20230417
  Receipt Date: 20230417
  Transmission Date: 20230722
  Serious: Yes (Other)
  Sender: FDA-Public Use
  Company Number: US-ORGANON-O2304USA001090

PATIENT
  Sex: Female

DRUGS (1)
  1. NEXPLANON [Suspect]
     Active Substance: ETONOGESTREL
     Dosage: 1 IMPLANT OF 68 MG ONE EVERY THREE YEARS
     Route: 059

REACTIONS (3)
  - Device expulsion [Recovered/Resolved]
  - Implant site fibrosis [Unknown]
  - Implant site scar [Unknown]
